FAERS Safety Report 10648104 (Version 1)
Quarter: 2014Q4

REPORT INFORMATION
  Report Type: Spontaneous
  Country: US (occurrence: None)
  Receive Date: 20141211
  Receipt Date: 20141211
  Transmission Date: 20150529
  Serious: No
  Sender: FDA-Public Use
  Company Number: None

PATIENT

DRUGS (2)
  1. ERWINIA [Suspect]
     Active Substance: ASPARAGINASE ERWINIA CHRYSANTHEMI
  2. L-ASPARAGINASE [Suspect]
     Active Substance: ASPARAGINASE

REACTIONS (7)
  - Incorrect route of drug administration [None]
  - Intercepted drug dispensing error [None]
  - Wrong drug administered [None]
  - Drug dispensing error [None]
  - Drug prescribing error [None]
  - Product name confusion [None]
  - Accidental overdose [None]
